FAERS Safety Report 9772666 (Version 1)
Quarter: 2013Q4

REPORT INFORMATION
  Report Type: Spontaneous
  Country: US (occurrence: None)
  Receive Date: 20131218
  Receipt Date: 20131218
  Transmission Date: 20140711
  Serious: No
  Sender: FDA-Public Use
  Company Number: None

PATIENT
  Age: 45 Year
  Sex: Male

DRUGS (9)
  1. LETAIRIS [Suspect]
     Dosage: LETAIRIS 5MG  1 TAB PO DAILY  ORAL
     Route: 048
     Dates: start: 20131109
  2. FUROSEMIDE [Concomitant]
  3. SILDENAFIL [Concomitant]
  4. SPIRONOLACTONE [Concomitant]
  5. PROPRANOLOL [Concomitant]
  6. FLUOXETINE [Concomitant]
  7. FERROUSE GLUCONATE [Concomitant]
  8. OMEPRAZOLE [Concomitant]
  9. ASPIRIN [Concomitant]

REACTIONS (2)
  - Oedema peripheral [None]
  - Swelling face [None]
